FAERS Safety Report 18442899 (Version 15)
Quarter: 2021Q3

REPORT INFORMATION
  Report Type: Report from Study
  Country: CO (occurrence: CO)
  Receive Date: 20201029
  Receipt Date: 20210714
  Transmission Date: 20211014
  Serious: Yes (Other)
  Sender: FDA-Public Use
  Company Number: CO-TAKEDA-2020TUS035894

PATIENT
  Age: 55 Year
  Sex: Female
  Weight: 74 kg

DRUGS (7)
  1. METOPROLOL. [Concomitant]
     Active Substance: METOPROLOL
     Dosage: 50 MILLIGRAM, QD
     Route: 048
  2. LOSARTAN. [Concomitant]
     Active Substance: LOSARTAN
     Dosage: 50 MILLIGRAM, QD
     Route: 048
  3. ATORVASTATINA [Concomitant]
     Active Substance: ATORVASTATIN
     Indication: HYPERTENSION
     Dosage: UNK
  4. VEDOLIZUMAB [Suspect]
     Active Substance: VEDOLIZUMAB
     Indication: COLITIS ULCERATIVE
     Dosage: 300 MILLIGRAM
     Route: 042
     Dates: start: 20200325
  5. QUETIAPINE. [Concomitant]
     Active Substance: QUETIAPINE
     Indication: SLEEP DISORDER
     Dosage: UNK
  6. LEVOTIROXINA [Concomitant]
     Dosage: 75 MICROGRAM, QD
     Route: 048
  7. FUROSEMIDE. [Concomitant]
     Active Substance: FUROSEMIDE
     Dosage: 40 MILLIGRAM
     Route: 048

REACTIONS (17)
  - Colitis ulcerative [Recovered/Resolved]
  - Alopecia [Unknown]
  - Stress [Unknown]
  - Gastrointestinal inflammation [Unknown]
  - Weight increased [Unknown]
  - Diarrhoea [Recovered/Resolved]
  - Abdominal pain [Recovering/Resolving]
  - Insomnia [Unknown]
  - Arthralgia [Unknown]
  - Headache [Recovered/Resolved]
  - Adenoma benign [Recovered/Resolved]
  - Gastrointestinal pain [Unknown]
  - Treatment delayed [Unknown]
  - Anxiety [Unknown]
  - Musculoskeletal stiffness [Unknown]
  - Fibroadenoma of breast [Recovered/Resolved]
  - Abdominal mass [Recovering/Resolving]

NARRATIVE: CASE EVENT DATE: 20200910
